FAERS Safety Report 4868234-X (Version None)
Quarter: 2005Q4

REPORT INFORMATION
  Report Type: 
  Country: None (occurrence: None)
  Receive Date: 20051223
  Receipt Date: 20051216
  Transmission Date: 20060501
  Serious: Yes (Death)
  Sender: FDA-Public Use
  Company Number: 220033

PATIENT
  Age: 76 Year
  Sex: Male

DRUGS (5)
  1. AVASTIN [Suspect]
     Indication: COLORECTAL CANCER METASTATIC
     Dosage: Q2W INTRAVENOUS
     Route: 042
     Dates: start: 20050907, end: 20051005
  2. OXALIPLATIN (OXALIPLATIN) [Suspect]
     Indication: COLORECTAL CANCER METASTATIC
  3. FLUOROURACIL [Suspect]
     Indication: COLORECTAL CANCER METASTATIC
  4. LEUCOVORIN CALCIUM [Suspect]
     Indication: COLORECTAL CANCER METASTATIC
  5. PRESSORS [Suspect]

REACTIONS (15)
  - BLOOD ALKALINE PHOSPHATASE INCREASED [None]
  - BLOOD BILIRUBIN DECREASED [None]
  - BLOOD CREATININE INCREASED [None]
  - BLOOD POTASSIUM INCREASED [None]
  - BLOOD SODIUM INCREASED [None]
  - BLOOD UREA INCREASED [None]
  - BODY TEMPERATURE DECREASED [None]
  - GANGRENE [None]
  - LOSS OF CONSCIOUSNESS [None]
  - PULSE ABSENT [None]
  - PUPILLARY DISORDER [None]
  - RESPIRATORY RATE INCREASED [None]
  - SHOCK [None]
  - ULCER [None]
  - URINE ANALYSIS ABNORMAL [None]
